FAERS Safety Report 19166702 (Version 1)
Quarter: 2021Q2

REPORT INFORMATION
  Report Type: Spontaneous
  Country: AR (occurrence: AR)
  Receive Date: 20210422
  Receipt Date: 20210422
  Transmission Date: 20210717
  Serious: Yes (Other)
  Sender: FDA-Public Use
  Company Number: AR-LUPIN PHARMACEUTICALS INC.-2021-05018

PATIENT
  Age: 45 Year
  Sex: Female

DRUGS (6)
  1. VORICONAZOLE. [Suspect]
     Active Substance: VORICONAZOLE
     Indication: KERATITIS FUNGAL
     Dosage: 0.5 MILLIGRAM PER MILLILITRE
     Route: 061
  2. AMPHOTERICIN?B [Suspect]
     Active Substance: AMPHOTERICIN B
     Indication: KERATITIS FUNGAL
     Dosage: 5 MILLIGRAM PER MILLILITRE
     Route: 065
  3. CYCLOPENTOLATE. [Suspect]
     Active Substance: CYCLOPENTOLATE
     Indication: KERATITIS FUNGAL
     Dosage: UNK
     Route: 065
  4. VANCOMYCIN [Concomitant]
     Active Substance: VANCOMYCIN
     Indication: INFECTIVE KERATITIS
     Dosage: 50 MILLIGRAM PER MILLILITRE
     Route: 065
  5. CEFTAZIDIME. [Concomitant]
     Active Substance: CEFTAZIDIME
     Indication: INFECTIVE KERATITIS
     Dosage: 50 MILLIGRAM PER MILLILITRE
     Route: 065
  6. FLUCONAZOLE. [Suspect]
     Active Substance: FLUCONAZOLE
     Indication: KERATITIS FUNGAL
     Dosage: 150 MILLIGRAM
     Route: 048

REACTIONS (1)
  - Drug ineffective [Unknown]
